FAERS Safety Report 16064361 (Version 2)
Quarter: 2019Q2

REPORT INFORMATION
  Report Type: Report from Study
  Country: US (occurrence: US)
  Receive Date: 20190312
  Receipt Date: 20190403
  Transmission Date: 20190711
  Serious: Yes (Death, Other)
  Sender: FDA-Public Use
  Company Number: PHHY2018US201254

PATIENT
  Age: 20 Year
  Sex: Male

DRUGS (1)
  1. KYMRIAH [Suspect]
     Active Substance: TISAGENLECLEUCEL
     Indication: B-CELL TYPE ACUTE LEUKAEMIA
     Dosage: ONCE/SINGLE
     Route: 041
     Dates: start: 2017

REACTIONS (4)
  - Cytokine release syndrome [Unknown]
  - Neutrophil count decreased [Recovered/Resolved]
  - Hypogammaglobulinaemia [Unknown]
  - Death [Fatal]
